FAERS Safety Report 6135996-3 (Version None)
Quarter: 2009Q1

REPORT INFORMATION
  Report Type: 
  Country: None (occurrence: None)
  Receive Date: 20090330
  Receipt Date: 20090318
  Transmission Date: 20090719
  Serious: Yes (Other)
  Sender: FDA-Public Use
  Company Number: FR-RANBAXY-2009RR-22896

PATIENT
  Age: 82 Year
  Sex: Female

DRUGS (4)
  1. AMOXICILLIN [Suspect]
  2. TEICOPLANIN [Suspect]
  3. XYNTABALIN [Concomitant]
  4. DAPTOMYCIN [Concomitant]
     Dosage: UNK
     Route: 042

REACTIONS (2)
  - PYREXIA [None]
  - RASH [None]
